FAERS Safety Report 6943928-0 (Version None)
Quarter: 2010Q3

REPORT INFORMATION
  Report Type: 
  Country: None (occurrence: None)
  Receive Date: 20100826
  Receipt Date: 20100823
  Transmission Date: 20110219
  Serious: Yes (Other)
  Sender: FDA-Public Use
  Company Number: B0671045A

PATIENT
  Sex: Male

DRUGS (3)
  1. AUGMENTIN '125' [Suspect]
     Indication: BRONCHIAL INJURY
     Dosage: 1UNIT SINGLE DOSE
     Route: 048
     Dates: start: 20090801, end: 20090801
  2. VENTOLIN [Concomitant]
     Route: 065
  3. DIPROSONE [Concomitant]
     Route: 065

REACTIONS (5)
  - ANGIOEDEMA [None]
  - DYSPNOEA [None]
  - PRURITUS GENERALISED [None]
  - SKIN TEST POSITIVE [None]
  - TYPE I HYPERSENSITIVITY [None]
